FAERS Safety Report 8328472-0 (Version None)
Quarter: 2012Q2

REPORT INFORMATION
  Report Type: 
  Country: None (occurrence: None)
  Receive Date: 20120502
  Receipt Date: 20120502
  Transmission Date: 20120825
  Serious: No
  Sender: FDA-Public Use
  Company Number: None

PATIENT
  Age: 42 Year
  Sex: Female
  Weight: 104.32 kg

DRUGS (1)
  1. CYMBALTA [Suspect]
     Indication: NEURALGIA
     Dosage: |DOSAGETEXT: 20.0 MG||STRENGTH: 20MG||FREQ: QD||ROUTE: ORAL|
     Route: 048
     Dates: start: 20110114, end: 20120430

REACTIONS (7)
  - FEELING ABNORMAL [None]
  - NAUSEA [None]
  - VERTIGO [None]
  - DIZZINESS [None]
  - WITHDRAWAL SYNDROME [None]
  - IMPAIRED WORK ABILITY [None]
  - FATIGUE [None]
